FAERS Safety Report 8441599-8 (Version None)
Quarter: 2012Q2

REPORT INFORMATION
  Report Type: 
  Country: None (occurrence: None)
  Receive Date: 20120615
  Receipt Date: 20111008
  Transmission Date: 20120825
  Serious: No
  Sender: FDA-Public Use
  Company Number: US-NOVEN-11US003398

PATIENT
  Sex: Male
  Weight: 29.478 kg

DRUGS (2)
  1. DAYTRANA [Suspect]
     Indication: PRODUCT USED FOR UNKNOWN INDICATION
     Dosage: 20 MG, QD
     Route: 062
     Dates: start: 20090101
  2. PROZAC [Concomitant]
     Indication: ASPERGER'S DISORDER
     Dosage: 5 MG, QD
     Route: 048
     Dates: start: 20080101

REACTIONS (3)
  - DRUG ADMINISTRATION ERROR [None]
  - PRODUCT QUALITY ISSUE [None]
  - NO ADVERSE EVENT [None]
